FAERS Safety Report 6957459-5 (Version None)
Quarter: 2010Q3

REPORT INFORMATION
  Report Type: 
  Country: None (occurrence: None)
  Receive Date: 20100831
  Receipt Date: 20100825
  Transmission Date: 20110219
  Serious: Yes (Other)
  Sender: FDA-Public Use
  Company Number: SE-TEVA-246122ISR

PATIENT

DRUGS (1)
  1. AZILECT [Suspect]
     Route: 048

REACTIONS (1)
  - ATRIAL FIBRILLATION [None]
